FAERS Safety Report 7496872-7 (Version None)
Quarter: 2011Q2

REPORT INFORMATION
  Report Type: 
  Country: None (occurrence: None)
  Receive Date: 20110523
  Receipt Date: 20110512
  Transmission Date: 20111010
  Serious: Yes (Other)
  Sender: FDA-Public Use
  Company Number: ZA-ELI_LILLY_AND_COMPANY-ZA201105003953

PATIENT
  Age: 50 Year
  Sex: Male

DRUGS (6)
  1. HUMULIN N [Suspect]
     Indication: DIABETES MELLITUS
     Dosage: 40 IU, EACH EVENING
     Route: 058
     Dates: start: 20110401
  2. HUMALOG [Suspect]
     Indication: DIABETES MELLITUS
     Dosage: 30 IU, TID
     Route: 058
     Dates: start: 20110401
  3. SIMVASTATIN [Concomitant]
     Indication: BLOOD CHOLESTEROL
     Dosage: 1 DF, QD
     Route: 048
  4. DISPRIN [Concomitant]
     Dosage: 1 DF, QD
     Route: 048
  5. ANTIHYPERTENSIVES [Concomitant]
     Indication: HYPERTENSION
     Dosage: 1 DF, QD
     Route: 048
  6. DIABION [Concomitant]
     Indication: VITAMIN SUPPLEMENTATION
     Dosage: 1 DF, QD
     Route: 048

REACTIONS (2)
  - BLOOD GLUCOSE FLUCTUATION [None]
  - HEADACHE [None]
